FAERS Safety Report 13396024 (Version 2)
Quarter: 2017Q2

REPORT INFORMATION
  Report Type: Report from Study
  Country: BR (occurrence: BR)
  Receive Date: 20170403
  Receipt Date: 20170531
  Transmission Date: 20170830
  Serious: Yes (Disabling, Other)
  Sender: FDA-Public Use
  Company Number: BR-JNJFOC-20170334094

PATIENT
  Sex: Female
  Weight: 68 kg

DRUGS (2)
  1. ATENSINA [Concomitant]
     Active Substance: CLONIDINE
     Route: 065
  2. SIMPONI [Suspect]
     Active Substance: GOLIMUMAB
     Indication: PSORIATIC ARTHROPATHY
     Route: 058
     Dates: start: 20150903

REACTIONS (2)
  - Depression [Recovered/Resolved]
  - Haemorrhagic stroke [Recovered/Resolved]
